FAERS Safety Report 6253577-8 (Version None)
Quarter: 2009Q2

REPORT INFORMATION
  Report Type: 
  Country: None (occurrence: None)
  Receive Date: 20090630
  Receipt Date: 20090616
  Transmission Date: 20091009
  Serious: Yes (Hospitalization)
  Sender: FDA-Public Use
  Company Number: 2009001820

PATIENT
  Sex: Male

DRUGS (2)
  1. TARCEVA [Suspect]
     Indication: PANCREATIC CARCINOMA
     Dosage: (100 MG,QD), ORAL
     Route: 048
     Dates: start: 20090410, end: 20090529
  2. GEMCITABINE [Concomitant]

REACTIONS (2)
  - EMPHYSEMA [None]
  - LUNG DISORDER [None]
